FAERS Safety Report 8369902-8 (Version None)
Quarter: 2012Q2

REPORT INFORMATION
  Report Type: 
  Country: None (occurrence: None)
  Receive Date: 20120518
  Receipt Date: 20120511
  Transmission Date: 20120825
  Serious: No
  Sender: FDA-Public Use
  Company Number: AU-SANOFI-AVENTIS-2012SA034903

PATIENT
  Age: 22 Year
  Sex: Female

DRUGS (1)
  1. ARAVA [Suspect]
     Route: 065

REACTIONS (1)
  - MATERNAL EXPOSURE DURING PREGNANCY [None]
